FAERS Safety Report 24047215 (Version 1)
Quarter: 2024Q3

REPORT INFORMATION
  Report Type: Report from Study
  Country: DE (occurrence: DE)
  Receive Date: 20240703
  Receipt Date: 20240703
  Transmission Date: 20241017
  Serious: Yes (Hospitalization, Other)
  Sender: ABBVIE
  Company Number: DE-ABBVIE-5823908

PATIENT
  Age: 76 Year
  Sex: Female
  Weight: 62 kg

DRUGS (2)
  1. HUMIRA [Suspect]
     Active Substance: ADALIMUMAB
     Indication: Rheumatoid arthritis
     Route: 058
     Dates: start: 20100601
  2. RAMIPRIL [Concomitant]
     Active Substance: RAMIPRIL
     Indication: Cardiac valve disease
     Dosage: 2.5/12.5
     Route: 048
     Dates: start: 2007

REACTIONS (9)
  - Knee arthroplasty [Recovered/Resolved]
  - Concussion [Recovered/Resolved]
  - Face injury [Recovered/Resolved]
  - Brain contusion [Recovered/Resolved]
  - Contusion [Recovered/Resolved]
  - Clavicle fracture [Recovered/Resolved]
  - Arthralgia [Recovered/Resolved]
  - Syncope [Recovered/Resolved]
  - Fall [Not Recovered/Not Resolved]

NARRATIVE: CASE EVENT DATE: 20230524
